FAERS Safety Report 9197313 (Version 1)
Quarter: 2013Q1

REPORT INFORMATION
  Report Type: Spontaneous
  Country: US (occurrence: None)
  Receive Date: 20120709
  Receipt Date: 20120709
  Transmission Date: 20140127
  Serious: No
  Sender: FDA-Public Use
  Company Number: 2012HGS-003604

PATIENT
  Age: 43 Year
  Sex: Female
  Weight: 70.31 kg

DRUGS (6)
  1. BENLYSTA [Suspect]
     Indication: SYSTEMIC LUPUS ERYTHEMATOSUS
     Dosage: 1 IN 14 D
     Route: 041
     Dates: start: 20120330
  2. NEURONTIN (GABAPENTIN) (GABAPENTIN) [Concomitant]
  3. SINGULAIR [Concomitant]
  4. BENADRYL (DIPHENHYDRAMINE HYDROCHLORIDE) (DIPHENHYDRAMINE HYDROCHLORIDE) [Concomitant]
  5. TIZANIDINE (TIZANIDINE) (TIZANIDINE) [Concomitant]
  6. LOSARTAN (LOSARTAN) (LOSARTAN) [Concomitant]

REACTIONS (8)
  - Wheezing [None]
  - Cough [None]
  - Chest discomfort [None]
  - Night sweats [None]
  - Dyspnoea [None]
  - Pyrexia [None]
  - Nausea [None]
  - Diarrhoea [None]
